FAERS Safety Report 9450066 (Version 2)
Quarter: 2014Q1

REPORT INFORMATION
  Report Type: Spontaneous
  Country: US (occurrence: US)
  Receive Date: 20130809
  Receipt Date: 20140210
  Transmission Date: 20141002
  Serious: Yes (Hospitalization, Other)
  Sender: FDA-Public Use
  Company Number: US-BAYER-2013-093597

PATIENT
  Age: 41 Year
  Sex: Female

DRUGS (4)
  1. MIRENA [Suspect]
     Indication: CONTRACEPTION
     Dosage: 20 MCG/24HR, CONT
     Route: 015
     Dates: start: 20060615, end: 20100816
  2. ORAL CONTRACEPTIVE NOS [Concomitant]
     Dosage: UNK
  3. ZYRTEC [Concomitant]
     Indication: MULTIPLE ALLERGIES
     Dosage: UNK
     Route: 048
  4. MOTRIN [Concomitant]
     Dosage: UNK

REACTIONS (17)
  - Uterine perforation [None]
  - Genital haemorrhage [None]
  - Fatigue [None]
  - Abdominal pain [None]
  - Pelvic pain [None]
  - Back pain [None]
  - Injury [None]
  - Abdominal pain upper [None]
  - Anxiety [None]
  - Ovarian cyst [None]
  - Urinary incontinence [None]
  - Salpingectomy [None]
  - Tachycardia [None]
  - Depression [None]
  - Fallopian tube cyst [None]
  - Marital problem [None]
  - Device issue [None]
